FAERS Safety Report 22062762 (Version 1)
Quarter: 2023Q1

REPORT INFORMATION
  Report Type: Spontaneous
  Country: US (occurrence: US)
  Receive Date: 20230306
  Receipt Date: 20230306
  Transmission Date: 20230417
  Serious: No
  Sender: FDA-Public Use
  Company Number: US-STRIDES ARCOLAB LIMITED-2023SP000490

PATIENT
  Age: 20 Year
  Sex: Male

DRUGS (2)
  1. AMANTADINE [Suspect]
     Active Substance: AMANTADINE
     Indication: Neuroleptic malignant syndrome
     Dosage: UNK
     Route: 065
  2. DANTROLENE [Concomitant]
     Active Substance: DANTROLENE
     Indication: Neuroleptic malignant syndrome
     Dosage: UNK
     Route: 065

REACTIONS (1)
  - Off label use [Unknown]
